FAERS Safety Report 21331640 (Version 3)
Quarter: 2022Q4

REPORT INFORMATION
  Report Type: Report from Study
  Country: GB (occurrence: GB)
  Receive Date: 20220914
  Receipt Date: 20221228
  Transmission Date: 20230112
  Serious: Yes (Hospitalization, Other)
  Sender: FDA-Public Use
  Company Number: GB-CELLTRION INC.-2022GB014667

PATIENT

DRUGS (7)
  1. RITUXIMAB [Suspect]
     Active Substance: RITUXIMAB
     Indication: Follicular lymphoma
     Dosage: THE LAST DOSE OF RITUXIMAB PRIOR TO THE SERIOUS ADVERSE EVENT (SAE) WAS TAKEN ON 14/JUL/2022./EVERY
     Route: 042
     Dates: start: 20220615
  2. RITUXIMAB [Suspect]
     Active Substance: RITUXIMAB
     Dosage: THE LAST DOSE OF RITUXIMAB PRIOR TO THE SAE OF SECOND EPISODE OF FEBRILE NEUTROPENIA WAS TAKEN ON 11
     Dates: start: 20220811
  3. TAFASITAMAB [Suspect]
     Active Substance: TAFASITAMAB
     Indication: Follicular lymphoma
     Dosage: THE LAST DOSE OF STUDY DRUG PRIOR TO THE SAE WAS TAKEN ON 28JUL2022.
     Route: 042
     Dates: start: 20220614, end: 20220804
  4. LENALIDOMIDE [Suspect]
     Active Substance: LENALIDOMIDE
     Indication: Follicular lymphoma
     Dosage: THE LAST DOSE OF LENALIDOMIDE PRIOR TO THE SAE WAS TAKEN ON: 31/JUL/2022.
     Route: 048
     Dates: start: 20220614, end: 20220801
  5. LENALIDOMIDE [Suspect]
     Active Substance: LENALIDOMIDE
     Dosage: THE LAST DOSE OF LENALIDOMIDE PRIOR TO THE SAE WAS TAKEN ON: 31/JUL/2022.
     Route: 048
     Dates: start: 20220614, end: 20220801
  6. LENALIDOMIDE [Suspect]
     Active Substance: LENALIDOMIDE
     Dosage: 15 MG
     Route: 048
     Dates: start: 20220819
  7. LENALIDOMIDE [Suspect]
     Active Substance: LENALIDOMIDE
     Dosage: 15 MG
     Route: 048
     Dates: start: 20220819

REACTIONS (1)
  - Febrile neutropenia [Recovered/Resolved]

NARRATIVE: CASE EVENT DATE: 20220731
